FAERS Safety Report 17010657 (Version 1)
Quarter: 2019Q4

REPORT INFORMATION
  Report Type: Spontaneous
  Country: US (occurrence: US)
  Receive Date: 20191107
  Receipt Date: 20191107
  Transmission Date: 20200122
  Serious: Yes (Hospitalization)
  Sender: FDA-Public Use
  Company Number: None

PATIENT
  Age: 18 Year
  Sex: Female

DRUGS (8)
  1. LITHIUM CARB [Concomitant]
     Active Substance: LITHIUM CARBONATE
  2. COLCHICINE. [Concomitant]
     Active Substance: COLCHICINE
  3. RANITIDINE. [Concomitant]
     Active Substance: RANITIDINE
  4. PREGABLIN [Concomitant]
     Active Substance: PREGABALIN
  5. HUMIRA [Suspect]
     Active Substance: ADALIMUMAB
     Indication: HIDRADENITIS
     Dosage: ?          OTHER FREQUENCY:EVERY 2 WEEKS;?
     Route: 058
     Dates: start: 20180116
  6. LITHIUM CARB [Concomitant]
     Active Substance: LITHIUM CARBONATE
  7. ARIPIPRAZOLE. [Concomitant]
     Active Substance: ARIPIPRAZOLE
  8. BUT/APAP/CAF [Concomitant]

REACTIONS (1)
  - Condition aggravated [None]

NARRATIVE: CASE EVENT DATE: 20191105
